FAERS Safety Report 9684528 (Version 2)
Quarter: 2014Q1

REPORT INFORMATION
  Report Type: Spontaneous
  Country: FI (occurrence: FI)
  Receive Date: 20131112
  Receipt Date: 20140227
  Transmission Date: 20141002
  Serious: Yes (Death, Other)
  Sender: FDA-Public Use
  Company Number: PHHY2013FI126368

PATIENT
  Age: 80 Year
  Sex: Female

DRUGS (2)
  1. DIGOXIN [Suspect]
  2. DIXYRAZINE [Suspect]
     Dosage: 0.15 MG/L, UNK

REACTIONS (2)
  - Toxicity to various agents [Fatal]
  - Drug level increased [Unknown]
